FAERS Safety Report 6088724-4 (Version None)
Quarter: 2009Q1

REPORT INFORMATION
  Report Type: 
  Country: None (occurrence: None)
  Receive Date: 20090220
  Receipt Date: 20090220
  Transmission Date: 20090719
  Serious: Yes (Other)
  Sender: FDA-Public Use
  Company Number: None

PATIENT
  Age: 62 Year
  Sex: Female

DRUGS (1)
  1. CHANTIX [Suspect]
     Indication: SMOKING CESSATION THERAPY
     Dosage: 1 GR.  1 A DAY 1-WEEK PO
     Route: 048
     Dates: start: 20080620, end: 20080806

REACTIONS (11)
  - ABNORMAL BEHAVIOUR [None]
  - ADVERSE DRUG REACTION [None]
  - AMNESIA [None]
  - ANXIETY [None]
  - APATHY [None]
  - DEPRESSION [None]
  - DRUG WITHDRAWAL SYNDROME [None]
  - EMOTIONAL DISORDER [None]
  - MOOD SWINGS [None]
  - PERSONALITY CHANGE [None]
  - SUICIDAL IDEATION [None]
